FAERS Safety Report 14495211 (Version 1)
Quarter: 2018Q1

REPORT INFORMATION
  Report Type: Spontaneous
  Country: CA (occurrence: CA)
  Receive Date: 20180206
  Receipt Date: 20180206
  Transmission Date: 20180509
  Serious: Yes (Death, Hospitalization, Other)
  Sender: FDA-Public Use
  Company Number: CA-BAUSCH-BL-2018-002868

PATIENT
  Age: 14 Month
  Sex: Female

DRUGS (16)
  1. VANCOMYCIN HYDROCHLORIDE. [Suspect]
     Active Substance: VANCOMYCIN HYDROCHLORIDE
     Indication: PYREXIA
     Route: 065
  2. APO-FLUCONAZOLE [Suspect]
     Active Substance: FLUCONAZOLE
     Indication: INFECTIOUS COLITIS
  3. MEROPENEM. [Suspect]
     Active Substance: MEROPENEM
     Indication: INFECTIOUS COLITIS
  4. MEROPENEM. [Suspect]
     Active Substance: MEROPENEM
     Indication: PYREXIA
     Dosage: POWDER FOR SOLUTION INTRAVENOUS
     Route: 042
  5. METHYLPREDNISOLONE. [Suspect]
     Active Substance: METHYLPREDNISOLONE
     Indication: HISTIOCYTOSIS HAEMATOPHAGIC
     Route: 065
  6. CYCLOPHOSPHAMIDE. [Suspect]
     Active Substance: CYCLOPHOSPHAMIDE
     Indication: PRODUCT USED FOR UNKNOWN INDICATION
     Route: 065
  7. PROCYTOX [Suspect]
     Active Substance: CYCLOPHOSPHAMIDE
     Indication: NEUROBLASTOMA
     Route: 065
  8. PIPERACILLIN SODIUM/TAZOBACTAM SODIUM [Suspect]
     Active Substance: PIPERACILLIN SODIUM\TAZOBACTAM SODIUM
     Indication: INFECTIOUS COLITIS
     Route: 065
  9. VANCOMYCIN HYDROCHLORIDE. [Suspect]
     Active Substance: VANCOMYCIN HYDROCHLORIDE
     Indication: INFECTIOUS COLITIS
  10. TENIPOSIDE. [Suspect]
     Active Substance: TENIPOSIDE
     Indication: NEUROBLASTOMA
     Route: 065
  11. CISPLATIN. [Suspect]
     Active Substance: CISPLATIN
     Indication: NEUROBLASTOMA
     Route: 065
  12. DOXORUBICIN HYDROCHLORIDE. [Suspect]
     Active Substance: DOXORUBICIN HYDROCHLORIDE
     Indication: NEUROBLASTOMA
     Dosage: SOLUTION INTRAVENOUS
     Route: 065
  13. ETOPOSIDE. [Suspect]
     Active Substance: ETOPOSIDE
     Indication: HISTIOCYTOSIS HAEMATOPHAGIC
     Route: 065
  14. VINCRISTINE SULFATE. [Suspect]
     Active Substance: VINCRISTINE SULFATE
     Indication: NEUROBLASTOMA
     Dosage: SOLUTION FOR INJECTION/INFUSION
     Route: 065
  15. METRONIDAZOLE. [Suspect]
     Active Substance: METRONIDAZOLE
     Indication: INFECTIOUS COLITIS
     Route: 065
  16. APO-FLUCONAZOLE [Suspect]
     Active Substance: FLUCONAZOLE
     Indication: PYREXIA
     Route: 065

REACTIONS (4)
  - Histiocytosis haematophagic [Fatal]
  - Pancytopenia [Fatal]
  - Low cardiac output syndrome [Fatal]
  - Multiple organ dysfunction syndrome [Fatal]
